FAERS Safety Report 7995400-7 (Version None)
Quarter: 2011Q4

REPORT INFORMATION
  Report Type: 
  Country: None (occurrence: None)
  Receive Date: 20111220
  Receipt Date: 20111215
  Transmission Date: 20120403
  Serious: Yes (Life-Threatening, Hospitalization)
  Sender: FDA-Public Use
  Company Number: CH-JNJFOC-20111104883

PATIENT
  Age: 58 Year
  Sex: Female

DRUGS (5)
  1. CONCERTA [Suspect]
     Dosage: ONE IN MORNING AND ONE IN AFTERNOON
     Route: 048
     Dates: start: 20060101, end: 20111021
  2. ABILIFY [Suspect]
     Indication: BIPOLAR DISORDER
     Dosage: 1 AT NIGHT
     Route: 048
     Dates: start: 20070101, end: 20111021
  3. CONCERTA [Suspect]
     Indication: ATTENTION DEFICIT/HYPERACTIVITY DISORDER
     Dosage: ONE IN MORNING AND ONE IN AFTERNOON
     Route: 048
     Dates: start: 20060101, end: 20111021
  4. BISOPROLOL FUMARATE [Concomitant]
     Indication: MIGRAINE
     Dosage: 1 IN THE MORNING
     Route: 048
  5. RITALIN [Suspect]
     Indication: ATTENTION DEFICIT/HYPERACTIVITY DISORDER
     Dosage: 1 IN MORNING, 1 IN AFTERNOON AND 1 AT NIGHT
     Route: 048
     Dates: start: 20060101, end: 20111021

REACTIONS (2)
  - ISCHAEMIC CEREBRAL INFARCTION [None]
  - HORNER'S SYNDROME [None]
